FAERS Safety Report 5227863-4 (Version None)
Quarter: 2007Q1

REPORT INFORMATION
  Report Type: 
  Country: None (occurrence: None)
  Receive Date: 20070202
  Receipt Date: 20070124
  Transmission Date: 20070707
  Serious: Yes (Death, Hospitalization, Other)
  Sender: FDA-Public Use
  Company Number: NL-ABBOTT-05P-114-0317341-00

PATIENT
  Sex: Female

DRUGS (7)
  1. DEPAKENE [Suspect]
     Indication: EPILEPSY
     Route: 048
     Dates: start: 20050624, end: 20050927
  2. PHENYTOIN [Concomitant]
     Indication: EPILEPSY
     Dates: start: 20050601, end: 20050701
  3. PHENYTOIN [Concomitant]
     Dates: end: 20050901
  4. PREDNISONE [Concomitant]
     Indication: SYSTEMIC LUPUS ERYTHEMATOSUS
     Route: 065
     Dates: start: 20050601, end: 20050701
  5. PREDNISONE [Concomitant]
     Dates: end: 20050901
  6. CLONAZEPAM [Concomitant]
     Indication: DRUG USE FOR UNKNOWN INDICATION
     Dates: start: 20050601, end: 20050701
  7. LEVETIRACETAM [Concomitant]
     Indication: EPILEPSY
     Route: 065
     Dates: start: 20050927, end: 20051015

REACTIONS (19)
  - ALPERS' DISEASE [None]
  - BLEEDING TIME PROLONGED [None]
  - CIRCULATORY COLLAPSE [None]
  - COORDINATION ABNORMAL [None]
  - HEADACHE [None]
  - HEPATIC FUNCTION ABNORMAL [None]
  - HEPATORENAL FAILURE [None]
  - HEPATORENAL SYNDROME [None]
  - MULTI-ORGAN FAILURE [None]
  - PULMONARY HAEMORRHAGE [None]
  - RENAL FAILURE [None]
  - SHOCK [None]
  - SOMNOLENCE [None]
  - SYSTEMIC LUPUS ERYTHEMATOSUS [None]
  - THALAMIC INFARCTION [None]
  - VISUAL FIELD DEFECT [None]
  - VOMITING [None]
  - WEIGHT DECREASED [None]
  - WEIGHT INCREASED [None]
